FAERS Safety Report 15853061 (Version 1)
Quarter: 2019Q1

REPORT INFORMATION
  Report Type: Spontaneous
  Country: US (occurrence: US)
  Receive Date: 20190122
  Receipt Date: 20190122
  Transmission Date: 20190417
  Serious: Yes (Hospitalization, Other)
  Sender: FDA-Public Use
  Company Number: US-009507513-1901USA008162

PATIENT
  Age: 69 Year
  Sex: Male

DRUGS (8)
  1. ABILIFY [Suspect]
     Active Substance: ARIPIPRAZOLE
     Dosage: 20 MILLIGRAM
  2. LOSARTAN. [Concomitant]
     Active Substance: LOSARTAN
     Dosage: UNK
  3. NORVASC [Concomitant]
     Active Substance: AMLODIPINE BESYLATE
     Dosage: UNK
  4. ATORVASTATIN [Concomitant]
     Active Substance: ATORVASTATIN
     Dosage: UNK
  5. COGENTIN [Concomitant]
     Active Substance: BENZTROPINE MESYLATE
     Dosage: UNK
  6. AMARYL [Concomitant]
     Active Substance: GLIMEPIRIDE
     Dosage: UNK
  7. ABILIFY [Suspect]
     Active Substance: ARIPIPRAZOLE
     Indication: SCHIZOPHRENIA
     Dosage: 10 MILLIGRAM
     Dates: start: 20181203
  8. JANUVIA [Suspect]
     Active Substance: SITAGLIPTIN PHOSPHATE
     Indication: DIABETES MELLITUS
     Dosage: 50 MILLIGRAM, UNK
     Route: 048
     Dates: start: 20181203

REACTIONS (7)
  - Blood urea increased [Recovering/Resolving]
  - Delusion [Not Recovered/Not Resolved]
  - Blood pressure increased [Recovered/Resolved]
  - Blood creatinine increased [Recovering/Resolving]
  - Back pain [Unknown]
  - Abnormal behaviour [Unknown]
  - Glomerular filtration rate decreased [Recovering/Resolving]

NARRATIVE: CASE EVENT DATE: 201812
